FAERS Safety Report 5072970-2 (Version None)
Quarter: 2006Q3

REPORT INFORMATION
  Report Type: 
  Country: None (occurrence: None)
  Receive Date: 20060802
  Receipt Date: 20060721
  Transmission Date: 20061208
  Serious: Yes (Other)
  Sender: FDA-Public Use
  Company Number: GXKR2006GB04235

PATIENT
  Age: 61 Year
  Sex: Male
  Weight: 80 kg

DRUGS (4)
  1. DOXAZOSIN                                     (DOXAZOSIN) [Suspect]
     Indication: HYPERTENSION
     Dosage: 4 MG, BID, ORAL   : 6 MG, ORAL
     Route: 048
     Dates: start: 20060301, end: 20060501
  2. ASPIRIN [Concomitant]
  3. ATENOLOL [Concomitant]
  4. INDAPAMIDE [Concomitant]

REACTIONS (3)
  - FATIGUE [None]
  - HAEMATURIA [None]
  - LETHARGY [None]
